FAERS Safety Report 21060366 (Version 1)
Quarter: 2022Q3

REPORT INFORMATION
  Report Type: Spontaneous
  Country: US (occurrence: US)
  Receive Date: 20220708
  Receipt Date: 20220708
  Transmission Date: 20221027
  Serious: No
  Sender: FDA-Public Use
  Company Number: US-SA-SAC20220705000873

PATIENT
  Age: 8 Year
  Sex: Female
  Weight: 20.408 kg

DRUGS (1)
  1. DUPIXENT [Suspect]
     Active Substance: DUPILUMAB
     Indication: Dermatitis atopic
     Dosage: 300 MG, Q4W
     Route: 058
     Dates: start: 20211202

REACTIONS (5)
  - COVID-19 [Unknown]
  - Cough [Unknown]
  - Sneezing [Unknown]
  - Pyrexia [Unknown]
  - Rhinorrhoea [Unknown]
